FAERS Safety Report 8570587-6 (Version None)
Quarter: 2012Q3

REPORT INFORMATION
  Report Type: 
  Country: None (occurrence: None)
  Receive Date: 20120804
  Receipt Date: 20120724
  Transmission Date: 20120928
  Serious: No
  Sender: FDA-Public Use
  Company Number: US-009507513-1207USA011667

PATIENT

DRUGS (3)
  1. METFORMIN HYDROCHLORIDE [Concomitant]
     Dosage: 1000 MG, BID
  2. GLIPIZIDE [Concomitant]
     Dosage: 10 MG, BID
  3. JANUVIA [Suspect]
     Dosage: 100 MG, QD

REACTIONS (1)
  - NAUSEA [None]
